FAERS Safety Report 4600536-4 (Version None)
Quarter: 2005Q1

REPORT INFORMATION
  Report Type: 
  Country: None (occurrence: None)
  Receive Date: 20050127
  Receipt Date: 20041028
  Transmission Date: 20050727
  Serious: No
  Sender: FDA-Public Use
  Company Number: USA041082611

PATIENT
  Age: 32 Year
  Sex: Male
  Weight: 88 kg

DRUGS (3)
  1. STRATTERA [Suspect]
     Indication: ATTENTION DEFICIT/HYPERACTIVITY DISORDER
     Dosage: 60 MG DAY
     Dates: start: 20041001
  2. EFFEXOR [Concomitant]
  3. XANAX (ALPRAZOLAM DUN) [Concomitant]

REACTIONS (4)
  - DISTURBANCE IN ATTENTION [None]
  - LETHARGY [None]
  - SOMNOLENCE [None]
  - URINARY RETENTION [None]
